FAERS Safety Report 20362132 (Version 5)
Quarter: 2022Q1

REPORT INFORMATION
  Report Type: Spontaneous
  Country: US (occurrence: US)
  Receive Date: 20220121
  Receipt Date: 20220308
  Transmission Date: 20220423
  Serious: Yes (Other)
  Sender: FDA-Public Use
  Company Number: US-NOVARTISTESTPH-NVSC2022US012905

PATIENT
  Age: 87 Year
  Sex: Male

DRUGS (4)
  1. PROMACTA [Suspect]
     Active Substance: ELTROMBOPAG OLAMINE
     Indication: Immune thrombocytopenia
     Dosage: 25 MG, QOD
     Route: 048
     Dates: start: 20210112
  2. PROMACTA [Suspect]
     Active Substance: ELTROMBOPAG OLAMINE
     Dosage: 50 MG, QOD
     Route: 048
     Dates: start: 20210112
  3. PROMACTA [Suspect]
     Active Substance: ELTROMBOPAG OLAMINE
     Dosage: 25 MG, QOD, (STRENGTH: 25 MG)
     Route: 048
     Dates: start: 202201
  4. PROMACTA [Suspect]
     Active Substance: ELTROMBOPAG OLAMINE
     Dosage: 50 MG, QOD, (STRENGTH: 50 MG)
     Route: 048
     Dates: start: 202201

REACTIONS (7)
  - Muscle spasms [Unknown]
  - Fatigue [Unknown]
  - Sleep disorder [Unknown]
  - Feeling abnormal [Unknown]
  - Cough [Unknown]
  - Nausea [Unknown]
  - Decreased appetite [Unknown]

NARRATIVE: CASE EVENT DATE: 20220101
